FAERS Safety Report 17411776 (Version 1)
Quarter: 2020Q1

REPORT INFORMATION
  Report Type: Spontaneous
  Country: JP (occurrence: JP)
  Receive Date: 20200213
  Receipt Date: 20200213
  Transmission Date: 20200409
  Serious: Yes (Death, Hospitalization, Other)
  Sender: FDA-Public Use
  Company Number: JP-TEVA-2020-JP-1183387

PATIENT
  Age: 84 Year
  Sex: Female

DRUGS (9)
  1. CEFMETAZOLE [Suspect]
     Active Substance: CEFMETAZOLE
     Indication: ANTIBIOTIC THERAPY
     Dosage: 4 GRAM DAILY;
     Route: 065
  2. ACICLOVIR [Suspect]
     Active Substance: ACYCLOVIR
     Indication: ANTIBIOTIC THERAPY
     Dosage: 1000 MILLIGRAM DAILY;
     Route: 042
  3. SULFAMETHOXAZOLE-TRIMETHOPRIM [Suspect]
     Active Substance: SULFAMETHOXAZOLE\TRIMETHOPRIM
     Indication: ANTIBIOTIC THERAPY
     Dosage: 7.5 MG/KG DAILY;
     Route: 065
  4. PREDNISOLONE. [Suspect]
     Active Substance: PREDNISOLONE
     Dosage: 80 MILLIGRAM DAILY; PREDNISOLONE DOSE WAS INCREASED TO 80 MG/DAY
     Route: 065
  5. PREDNISOLONE. [Suspect]
     Active Substance: PREDNISOLONE
     Dosage: 5 MILLIGRAM DAILY; DOSE WAS REDUCED TO 5MG/DAY AFTER PRESENTATION;
     Route: 065
  6. SULBACTAM/AMPICILLIN [Suspect]
     Active Substance: AMPICILLIN SODIUM\SULBACTAM SODIUM
     Indication: ANTIBIOTIC THERAPY
     Dosage: 6 GRAM DAILY;
     Route: 065
  7. PREDNISOLONE. [Suspect]
     Active Substance: PREDNISOLONE
     Indication: HAEMOLYTIC ANAEMIA
     Route: 065
  8. VANCOMYCIN [Suspect]
     Active Substance: VANCOMYCIN
     Indication: ANTIBIOTIC THERAPY
     Dosage: 500MG TO 1G AT A TIME
     Route: 065
  9. VALACICLOVIR [Suspect]
     Active Substance: VALACYCLOVIR HYDROCHLORIDE
     Indication: ANTIBIOTIC THERAPY
     Dosage: 1 GRAM DAILY;
     Route: 065

REACTIONS (8)
  - Coma [Fatal]
  - Herpes zoster [Fatal]
  - Pneumocystis jirovecii pneumonia [Fatal]
  - Acute respiratory failure [Fatal]
  - Renal impairment [Fatal]
  - Drug ineffective [Unknown]
  - Varicella zoster pneumonia [Fatal]
  - Mental status changes [Fatal]
